FAERS Safety Report 23781530 (Version 1)
Quarter: 2024Q2

REPORT INFORMATION
  Report Type: Spontaneous
  Country: ZA (occurrence: None)
  Receive Date: 20240425
  Receipt Date: 20240425
  Transmission Date: 20240716
  Serious: Yes (Death)
  Sender: FDA-Public Use
  Company Number: 2024A097139

PATIENT
  Age: 85 Year
  Sex: Female

DRUGS (10)
  1. DAPAGLIFLOZIN [Suspect]
     Active Substance: DAPAGLIFLOZIN
     Route: 048
  2. BISOPROLOL [Concomitant]
     Active Substance: BISOPROLOL\BISOPROLOL FUMARATE
  3. SPIRACTIN [Concomitant]
  4. ISMO [Concomitant]
     Active Substance: ISOSORBIDE MONONITRATE
  5. FUROSEMIDE [Concomitant]
     Active Substance: FUROSEMIDE
  6. POTASSIUM CHLORIDE [Concomitant]
     Active Substance: POTASSIUM CHLORIDE
  7. ECOTRIN [Concomitant]
     Active Substance: ASPIRIN
  8. IVOLAN [Concomitant]
  9. NORMOTEN [Concomitant]
  10. CARBILEV [Concomitant]
     Active Substance: CARBIDOPA\LEVODOPA
     Dosage: 25 25/100 MG

REACTIONS (1)
  - Cardiac failure [Fatal]
